FAERS Safety Report 8357044-7 (Version None)
Quarter: 2012Q2

REPORT INFORMATION
  Report Type: 
  Country: None (occurrence: None)
  Receive Date: 20120514
  Receipt Date: 20120509
  Transmission Date: 20120825
  Serious: Yes (Hospitalization)
  Sender: FDA-Public Use
  Company Number: ES-ROCHE-1051140

PATIENT
  Age: 54 Year
  Sex: Female
  Weight: 68.8 kg

DRUGS (5)
  1. BEROCCA C [Concomitant]
     Dates: start: 20120214
  2. AMITRIPTYLINE HCL [Concomitant]
     Dates: start: 20120214
  3. OPTOVITE B12 [Concomitant]
     Dates: start: 20120214
  4. VEMURAFENIB [Suspect]
     Indication: METASTATIC MALIGNANT MELANOMA
     Route: 048
     Dates: start: 20120302
  5. FOLIC ACID [Concomitant]
     Dates: start: 20120214

REACTIONS (1)
  - EPILEPSY [None]
